FAERS Safety Report 18406351 (Version 1)
Quarter: 2020Q4

REPORT INFORMATION
  Report Type: Spontaneous
  Country: AU (occurrence: AU)
  Receive Date: 20201020
  Receipt Date: 20201020
  Transmission Date: 20210114
  Serious: Yes (Other)
  Sender: FDA-Public Use
  Company Number: AU-TAKEDA-2020TUS042482

PATIENT

DRUGS (5)
  1. BUDESONIDE. [Suspect]
     Active Substance: BUDESONIDE
     Indication: PRODUCT USED FOR UNKNOWN INDICATION
     Dosage: UNK
     Route: 065
     Dates: start: 201804
  2. MESALAZINE [Suspect]
     Active Substance: MESALAMINE
     Indication: PRODUCT USED FOR UNKNOWN INDICATION
     Dosage: UNK
     Route: 065
  3. ENTYVIO [Suspect]
     Active Substance: VEDOLIZUMAB
     Indication: COLITIS ULCERATIVE
     Dosage: 300 MILLIGRAM
     Route: 065
  4. INFLIXIMAB [Suspect]
     Active Substance: INFLIXIMAB
     Indication: PRODUCT USED FOR UNKNOWN INDICATION
     Dosage: UNK
     Route: 065
  5. AZATHIOPRINE. [Suspect]
     Active Substance: AZATHIOPRINE
     Indication: PRODUCT USED FOR UNKNOWN INDICATION
     Dosage: UNK
     Route: 065

REACTIONS (7)
  - Drug ineffective [Unknown]
  - Mucous stools [Unknown]
  - Pyoderma [Unknown]
  - Rectal haemorrhage [Unknown]
  - Nausea [Unknown]
  - Colitis ulcerative [Unknown]
  - Anal incontinence [Unknown]

NARRATIVE: CASE EVENT DATE: 201802
